FAERS Safety Report 15803692 (Version 1)
Quarter: 2019Q1

REPORT INFORMATION
  Report Type: Report from Study
  Country: US (occurrence: US)
  Receive Date: 20190109
  Receipt Date: 20190109
  Transmission Date: 20190417
  Serious: Yes (Death, Hospitalization)
  Sender: FDA-Public Use
  Company Number: US-ACTELION-A-NJ2018-173428

PATIENT
  Age: 79 Year
  Sex: Female
  Weight: 73.16 kg

DRUGS (3)
  1. VENTAVIS [Suspect]
     Active Substance: ILOPROST
     Indication: PULMONARY ARTERIAL HYPERTENSION
     Dosage: 5 MCG, 6 TO 9 TIMES/DAY
     Route: 055
  2. ESBRIET [Concomitant]
     Active Substance: PIRFENIDONE
  3. COUMADIN [Concomitant]
     Active Substance: WARFARIN SODIUM

REACTIONS (20)
  - Blood pressure systolic decreased [Unknown]
  - Nausea [Recovered/Resolved]
  - Back disorder [Not Recovered/Not Resolved]
  - Death [Fatal]
  - Crepitations [Unknown]
  - Fatigue [Unknown]
  - Bone pain [Unknown]
  - Colitis [Recovering/Resolving]
  - Dry mouth [Unknown]
  - Heart rate irregular [Unknown]
  - Decreased appetite [Recovering/Resolving]
  - Diarrhoea [Unknown]
  - Rales [Unknown]
  - Dysgeusia [Unknown]
  - Hypotension [Unknown]
  - Headache [Unknown]
  - Asthenia [Unknown]
  - Retching [Unknown]
  - Gait disturbance [Not Recovered/Not Resolved]
  - Arthritis [Unknown]

NARRATIVE: CASE EVENT DATE: 20180611
